FAERS Safety Report 7572712-2 (Version None)
Quarter: 2011Q2

REPORT INFORMATION
  Report Type: 
  Country: None (occurrence: None)
  Receive Date: 20110620
  Receipt Date: 20110603
  Transmission Date: 20111010
  Serious: Yes (Other)
  Sender: FDA-Public Use
  Company Number: 2011MA006745

PATIENT
  Age: 1 Year
  Sex: Male

DRUGS (1)
  1. BETAMETHASONE DIPROPIONATE [Suspect]
     Indication: RESPIRATORY TRACT INFECTION
     Dosage: 0.5 MG/ML;

REACTIONS (11)
  - BLOOD CALCIUM DECREASED [None]
  - BLOOD TRIGLYCERIDES INCREASED [None]
  - BLOOD GLUCOSE INCREASED [None]
  - MUCOCUTANEOUS CANDIDIASIS [None]
  - BLOOD ALKALINE PHOSPHATASE INCREASED [None]
  - ELEVATED MOOD [None]
  - HIRSUTISM [None]
  - BLOOD SODIUM DECREASED [None]
  - LIPOHYPERTROPHY [None]
  - OBESITY [None]
  - INCREASED APPETITE [None]
